FAERS Safety Report 17611341 (Version 1)
Quarter: 2020Q2

REPORT INFORMATION
  Report Type: Spontaneous
  Country: US (occurrence: US)
  Receive Date: 20200401
  Receipt Date: 20200401
  Transmission Date: 20200713
  Serious: Yes (Other)
  Sender: FDA-Public Use
  Company Number: US-PRINSTON PHARMACEUTICAL INC.-2020PRN00100

PATIENT
  Age: 72 Year
  Sex: Female
  Weight: 47.17 kg

DRUGS (5)
  1. ROPINIROLE HYDROCHLORIDE. [Suspect]
     Active Substance: ROPINIROLE HYDROCHLORIDE
     Dosage: 0.75 MG, 1X/DAY
     Route: 048
     Dates: start: 2007, end: 20200301
  2. SIMVASTATIN. [Concomitant]
     Active Substance: SIMVASTATIN
  3. ROPINIROLE HYDROCHLORIDE. [Suspect]
     Active Substance: ROPINIROLE HYDROCHLORIDE
     Indication: RESTLESS LEGS SYNDROME
     Dosage: 0.5 MG, 1X/DAY
     Route: 048
     Dates: start: 2007, end: 20200301
  4. ATIVAN [Concomitant]
     Active Substance: LORAZEPAM
  5. ROPINIROLE HYDROCHLORIDE. [Suspect]
     Active Substance: ROPINIROLE HYDROCHLORIDE
     Dosage: ^HAD TO TAKE SOME^
     Route: 048
     Dates: start: 202003, end: 202003

REACTIONS (2)
  - Neuropathy peripheral [Not Recovered/Not Resolved]
  - Gait disturbance [Not Recovered/Not Resolved]

NARRATIVE: CASE EVENT DATE: 201909
